FAERS Safety Report 5594381-3 (Version None)
Quarter: 2008Q1

REPORT INFORMATION
  Report Type: 
  Country: None (occurrence: None)
  Receive Date: 20080115
  Receipt Date: 20080115
  Transmission Date: 20080703
  Serious: Yes (Other)
  Sender: FDA-Public Use
  Company Number: None

PATIENT
  Sex: Female
  Weight: 140.1615 kg

DRUGS (3)
  1. ALLEGRA [Suspect]
     Indication: HYPERSENSITIVITY
     Dosage: 1 TAB. DAILY PO
     Route: 048
     Dates: start: 20020116
  2. ACIPHEX [Suspect]
     Indication: GASTROOESOPHAGEAL REFLUX DISEASE
     Dosage: 1 TAB. DAILY PO
     Route: 048
     Dates: start: 20020116
  3. ACIPHEX [Suspect]
     Indication: OESOPHAGEAL STENOSIS
     Dosage: 1 TAB. DAILY PO
     Route: 048
     Dates: start: 20020116

REACTIONS (3)
  - DRUG HYPERSENSITIVITY [None]
  - DRUG INEFFECTIVE [None]
  - RASH PRURITIC [None]
